FAERS Safety Report 18695356 (Version 4)
Quarter: 2022Q1

REPORT INFORMATION
  Report Type: Spontaneous
  Country: US (occurrence: US)
  Receive Date: 20210104
  Receipt Date: 20220110
  Transmission Date: 20220424
  Serious: Yes (Other)
  Sender: FDA-Public Use
  Company Number: US-PFIZER INC-2019305268

PATIENT
  Age: 65 Year
  Sex: Female

DRUGS (2)
  1. PREMARIN [Suspect]
     Active Substance: ESTROGENS, CONJUGATED
     Dosage: UNK (QUANTITY FOR 90 DAYS: 42 GRAMS)
  2. PREMARIN [Suspect]
     Active Substance: ESTROGENS, CONJUGATED
     Dosage: 0.5 MG, THREE TIMES A WEEK
     Route: 067

REACTIONS (7)
  - Presbyacusis [Unknown]
  - Sinus disorder [Unknown]
  - Tremor [Unknown]
  - Malaise [Unknown]
  - Intentional product misuse [Unknown]
  - Off label use [Unknown]
  - Product prescribing error [Unknown]

NARRATIVE: CASE EVENT DATE: 20210305
